FAERS Safety Report 8804713 (Version 1)
Quarter: 2012Q4

REPORT INFORMATION
  Report Type: 
  Country: AT (occurrence: AT)
  Receive Date: 20120924
  Receipt Date: 20120924
  Transmission Date: 20130627
  Serious: Yes (Hospitalization)
  Sender: FDA-Public Use
  Company Number: AT-ABBOTT-12P-009-0964049-00

PATIENT
  Age: 74 Year
  Sex: Male
  Weight: 73 kg

DRUGS (1)
  1. DUODOPA [Suspect]
     Indication: PARKINSON^S DISEASE
     Dates: start: 20071012

REACTIONS (3)
  - Procedural haemorrhage [Not Recovered/Not Resolved]
  - Localised oedema [Not Recovered/Not Resolved]
  - Device alarm issue [Unknown]
